FAERS Safety Report 7138084-2 (Version None)
Quarter: 2010Q4

REPORT INFORMATION
  Report Type: 
  Country: None (occurrence: None)
  Receive Date: 20101206
  Receipt Date: 20101124
  Transmission Date: 20110411
  Serious: Yes (Death)
  Sender: FDA-Public Use
  Company Number: CA-ACTELION-A-US2010-41491

PATIENT

DRUGS (13)
  1. TRACLEER [Suspect]
     Indication: PULMONARY ARTERIAL HYPERTENSION
     Dosage: 125 MG, BID
     Route: 048
     Dates: start: 20101022, end: 20101109
  2. TRACLEER [Suspect]
     Dosage: 62.5 MG, BID
     Route: 048
     Dates: start: 20091029, end: 20101021
  3. ARICEPT [Concomitant]
  4. LASIX [Concomitant]
  5. METOPROLOL [Concomitant]
  6. RAMIPRIL [Concomitant]
  7. CRESTOR [Concomitant]
  8. COUMADIN [Concomitant]
  9. DIGOXIN [Concomitant]
  10. GABAPENTIN [Concomitant]
  11. ASPIRIN [Concomitant]
  12. OXAZEPAM [Concomitant]
  13. INSULIN [Concomitant]

REACTIONS (1)
  - PULMONARY ARTERIAL HYPERTENSION [None]
